FAERS Safety Report 16998733 (Version 1)
Quarter: 2019Q4

REPORT INFORMATION
  Report Type: Report from Study
  Country: CN (occurrence: CN)
  Receive Date: 20191106
  Receipt Date: 20191106
  Transmission Date: 20200122
  Serious: Yes (Other)
  Sender: FDA-Public Use
  Company Number: CN-ACCORD-159900

PATIENT

DRUGS (2)
  1. TACROLIMUS. [Suspect]
     Active Substance: TACROLIMUS
     Indication: GLOMERULONEPHRITIS MEMBRANOUS
     Dosage: TARGET CONCENTRATION TO BETWEEN 5 AND?8 NG/ML
  2. PREDNISONE. [Suspect]
     Active Substance: PREDNISONE
     Indication: GLOMERULONEPHRITIS MEMBRANOUS
     Dosage: 5 MG EVERY 4 WEEKS TO 10 MG/DAY FOR 6 MONTHS
     Route: 048

REACTIONS (1)
  - Respiratory tract infection [Unknown]
